FAERS Safety Report 4269741-3 (Version None)
Quarter: 2004Q1

REPORT INFORMATION
  Report Type: 
  Country: None (occurrence: None)
  Receive Date: 20040109
  Receipt Date: 20031230
  Transmission Date: 20041129
  Serious: Yes (Hospitalization, Other)
  Sender: FDA-Public Use
  Company Number: 2004000048

PATIENT
  Sex: Male

DRUGS (2)
  1. TIKOSYN [Suspect]
     Indication: ILL-DEFINED DISORDER
  2. ZITHROMAX [Suspect]
     Indication: PNEUMONIA
     Dosage: INTRAVENOUS
     Route: 042

REACTIONS (2)
  - PNEUMONIA [None]
  - TORSADE DE POINTES [None]
